FAERS Safety Report 5286882-2 (Version None)
Quarter: 2007Q1

REPORT INFORMATION
  Report Type: 
  Country: None (occurrence: None)
  Receive Date: 20070329
  Receipt Date: 20070315
  Transmission Date: 20070707
  Serious: Yes (Other)
  Sender: FDA-Public Use
  Company Number: 2007RR-06449

PATIENT
  Age: 67 Year
  Sex: Male

DRUGS (3)
  1. CIPROFLOXACIN (CIPROFLOXACIN) UNIKNOWN [Suspect]
     Indication: PROPHYLAXIS
  2. OFLOXACIN [Concomitant]
  3. OCUFLOX [Concomitant]

REACTIONS (3)
  - CORNEAL DEPOSITS [None]
  - TREATMENT NONCOMPLIANCE [None]
  - WRONG DRUG ADMINISTERED [None]
